FAERS Safety Report 22306334 (Version 2)
Quarter: 2023Q2

REPORT INFORMATION
  Report Type: Other
  Country: US (occurrence: None)
  Receive Date: 20230511
  Receipt Date: 20230516
  Transmission Date: 20230722
  Serious: Yes (Hospitalization)
  Sender: FDA-Public Use
  Company Number: US-ROCHE-3347376

PATIENT
  Age: 32 Year
  Sex: Male
  Weight: 86.714 kg

DRUGS (5)
  1. XOLAIR [Suspect]
     Active Substance: OMALIZUMAB
     Indication: Asthma
     Dosage: INJECT 300MG SUBCUTANEOUSLY EVERY 2 WEEK?THE LAST DOSE OF XOLAIR WAS ON 27/JAN/2023
     Route: 058
     Dates: start: 20200320
  2. XOLAIR [Suspect]
     Active Substance: OMALIZUMAB
  3. XOLAIR [Suspect]
     Active Substance: OMALIZUMAB
  4. SPIRIVA [Concomitant]
     Active Substance: TIOTROPIUM BROMIDE MONOHYDRATE
     Dosage: 1 PUFF 18MCG CAPSULES
     Route: 055
  5. ALBUTEROL [Concomitant]
     Active Substance: ALBUTEROL
     Dosage: 90MCG 2 PUFFS EVERY 6 HOURS AS NEEDED

REACTIONS (1)
  - Asthma [Unknown]
